FAERS Safety Report 6111773-4 (Version None)
Quarter: 2009Q1

REPORT INFORMATION
  Report Type: 
  Country: None (occurrence: None)
  Receive Date: 20090311
  Receipt Date: 20081215
  Transmission Date: 20090719
  Serious: No
  Sender: FDA-Public Use
  Company Number: US-TYCO HEALTHCARE/MALLINCKRODT-T200802113

PATIENT
  Sex: Female
  Weight: 81.633 kg

DRUGS (2)
  1. RESTORIL [Suspect]
     Indication: INSOMNIA
     Dosage: 30 MG, QD AS NEEDED
     Route: 048
     Dates: start: 20071201
  2. DIOVAN                             /01319601/ [Concomitant]
     Indication: HYPERTENSION
     Dosage: UNK
     Route: 048

REACTIONS (1)
  - MYALGIA [None]
